FAERS Safety Report 7388243-9 (Version None)
Quarter: 2011Q1

REPORT INFORMATION
  Report Type: 
  Country: None (occurrence: None)
  Receive Date: 20110329
  Receipt Date: 20110329
  Transmission Date: 20110831
  Serious: No
  Sender: FDA-Public Use
  Company Number: None

PATIENT
  Sex: Male

DRUGS (1)
  1. SUBOXONE [Suspect]
     Dates: start: 20110113, end: 20110325

REACTIONS (1)
  - PRODUCT QUALITY ISSUE [None]
